FAERS Safety Report 6640050-8 (Version None)
Quarter: 2010Q1

REPORT INFORMATION
  Report Type: 
  Country: None (occurrence: None)
  Receive Date: 20100318
  Receipt Date: 20100305
  Transmission Date: 20100710
  Serious: Yes (Life-Threatening, Other)
  Sender: FDA-Public Use
  Company Number: GB-ELI_LILLY_AND_COMPANY-GB201003001480

PATIENT
  Age: 22 Year
  Sex: Female
  Weight: 66 kg

DRUGS (6)
  1. DULOXETINE HYDROCHLORIDE [Suspect]
     Indication: DEPRESSION
     Dosage: 60 MG, UNKNOWN
     Route: 048
     Dates: start: 20091126, end: 20100224
  2. CONTRACEPTIVES NOS [Concomitant]
     Dosage: UNK, UNKNOWN
     Route: 065
  3. PHENERGAN HCL [Concomitant]
     Dosage: 25 MG, DAILY (1/D)
     Route: 065
  4. QUETIAPINE [Concomitant]
     Dosage: 150 MG, DAILY (1/D)
     Route: 065
     Dates: start: 20091201
  5. QUETIAPINE [Concomitant]
     Dosage: 25 MG, DAILY (1/D)
     Route: 065
  6. TACROLIMUS [Concomitant]
     Dosage: UNK, UNKNOWN
     Route: 061

REACTIONS (2)
  - ABORTION SPONTANEOUS [None]
  - DRUG EXPOSURE DURING PREGNANCY [None]
